FAERS Safety Report 7086794-8 (Version None)
Quarter: 2010Q4

REPORT INFORMATION
  Report Type: 
  Country: None (occurrence: None)
  Receive Date: 20101105
  Receipt Date: 20101022
  Transmission Date: 20110411
  Serious: Yes (Other)
  Sender: FDA-Public Use
  Company Number: AU-WATSON-2010-14238

PATIENT
  Age: 88 Year
  Sex: Female

DRUGS (2)
  1. PREDNISOLONE [Suspect]
     Indication: ASTHMA
     Dosage: 5 MG, DAILY
  2. ALENDRONATE SODIUM [Suspect]
     Dosage: 70 MG, 1/WEEK

REACTIONS (1)
  - OSTEONECROSIS OF JAW [None]
